FAERS Safety Report 7386997-9 (Version None)
Quarter: 2011Q1

REPORT INFORMATION
  Report Type: 
  Country: None (occurrence: None)
  Receive Date: 20110331
  Receipt Date: 20110323
  Transmission Date: 20110831
  Serious: Yes (Other)
  Sender: FDA-Public Use
  Company Number: JP-PFIZER INC-2011013442

PATIENT
  Age: 13 Year
  Sex: Male
  Weight: 31.2 kg

DRUGS (6)
  1. EXCEGRAN [Suspect]
     Indication: EPILEPSY
     Dosage: UNK
     Route: 048
     Dates: start: 20070101, end: 20100801
  2. TOPIRAMATE [Suspect]
     Indication: EPILEPSY
     Dosage: UNK
     Route: 048
     Dates: start: 20100701
  3. VALPROATE SODIUM [Concomitant]
     Indication: EPILEPSY
     Dosage: UNK
     Route: 048
     Dates: start: 20060101, end: 20070101
  4. GABAPEN [Suspect]
     Indication: EPILEPSY
     Dosage: UNK
     Route: 048
     Dates: start: 20070101, end: 20101201
  5. LAMOTRIGINE [Suspect]
     Indication: EPILEPSY
     Dosage: UNK
     Route: 048
     Dates: start: 20090101
  6. POTASSIUM BROMIDE [Concomitant]
     Indication: EPILEPSY
     Dosage: UNK
     Route: 048
     Dates: start: 20070101

REACTIONS (3)
  - BLOOD IMMUNOGLOBULIN A DECREASED [None]
  - SUBCUTANEOUS ABSCESS [None]
  - BLOOD IMMUNOGLOBULIN G DECREASED [None]
